FAERS Safety Report 4867399-3 (Version None)
Quarter: 2005Q4

REPORT INFORMATION
  Report Type: 
  Country: None (occurrence: None)
  Receive Date: 20051228
  Receipt Date: 20050725
  Transmission Date: 20060501
  Serious: Yes (Death)
  Sender: FDA-Public Use
  Company Number: NO-SANOFI-SYNTHELABO-A01200505098

PATIENT
  Sex: Female

DRUGS (5)
  1. PLAVIX [Suspect]
     Indication: ACUTE MYOCARDIAL INFARCTION
     Route: 048
     Dates: start: 20050513, end: 20050602
  2. ALBYL-E [Suspect]
     Indication: ANTICOAGULANT THERAPY
     Route: 048
     Dates: start: 20050513, end: 20050602
  3. LIPITOR [Concomitant]
     Indication: BLOOD CHOLESTEROL INCREASED
     Route: 048
  4. SERETIDE DISKUS [Concomitant]
     Indication: ASTHMA
     Dosage: 2 PER DAY
     Route: 055
  5. SELO-ZOK [Concomitant]
     Indication: HYPERTENSION
     Route: 048

REACTIONS (3)
  - CEREBRAL HAEMORRHAGE TRAUMATIC [None]
  - SUBARACHNOID HAEMORRHAGE [None]
  - THROMBOTIC STROKE [None]
